FAERS Safety Report 4552792-9 (Version None)
Quarter: 2005Q1

REPORT INFORMATION
  Report Type: 
  Country: None (occurrence: None)
  Receive Date: 20050114
  Receipt Date: 20050105
  Transmission Date: 20050727
  Serious: Yes (Life-Threatening, Hospitalization)
  Sender: FDA-Public Use
  Company Number: FR-ROCHE-391431

PATIENT
  Age: 40 Year
  Sex: Female

DRUGS (3)
  1. CAPECITABINE [Suspect]
     Indication: BREAST CANCER
     Dosage: FOR FOURTEEN DAYS OF AN UNSPECIFIED CYCLE
     Route: 048
     Dates: start: 20041013, end: 20041026
  2. DURAGESIC [Suspect]
     Route: 062
  3. PROZAC [Concomitant]
     Dates: start: 20030615, end: 20041027

REACTIONS (5)
  - HEPATIC FAILURE [None]
  - MEDICATION ERROR [None]
  - MULTIPLE DRUG OVERDOSE [None]
  - OVERDOSE [None]
  - RENAL FAILURE [None]
